FAERS Safety Report 6747313-6 (Version None)
Quarter: 2010Q2

REPORT INFORMATION
  Report Type: 
  Country: None (occurrence: None)
  Receive Date: 20100528
  Receipt Date: 20100521
  Transmission Date: 20101027
  Serious: Yes (Hospitalization)
  Sender: FDA-Public Use
  Company Number: A0861588A

PATIENT
  Age: 55 Year
  Sex: Male

DRUGS (1)
  1. AVANDIA [Suspect]
     Dates: start: 20030905, end: 20070301

REACTIONS (7)
  - ANXIETY [None]
  - ASTHENIA [None]
  - CARDIAC DISORDER [None]
  - CORONARY ARTERY BYPASS [None]
  - DEPRESSION [None]
  - FEAR OF DEATH [None]
  - MYOCARDIAL INFARCTION [None]
